FAERS Safety Report 9913033 (Version 1)
Quarter: 2014Q1

REPORT INFORMATION
  Report Type: Spontaneous
  Country: US (occurrence: None)
  Receive Date: 20140218
  Receipt Date: 20140218
  Transmission Date: 20141002
  Serious: Yes (Other)
  Sender: FDA-Public Use
  Company Number: None

PATIENT
  Age: 74 Year
  Sex: Female

DRUGS (1)
  1. TARGRETIN [Suspect]
     Indication: LEUKAEMIA
     Route: 048
     Dates: start: 20140123, end: 20140217

REACTIONS (1)
  - Dyspnoea [None]
